FAERS Safety Report 9554383 (Version 1)
Quarter: 2013Q3

REPORT INFORMATION
  Report Type: Spontaneous
  Country: GB (occurrence: GB)
  Receive Date: 20130925
  Receipt Date: 20130925
  Transmission Date: 20140515
  Serious: Yes (Disabling, Other)
  Sender: FDA-Public Use
  Company Number: GB-MERCK-1309GBR009189

PATIENT
  Age: 67 Year
  Sex: Male

DRUGS (4)
  1. SIMVASTATIN [Suspect]
     Indication: HYPERTRIGLYCERIDAEMIA
     Dosage: 20 MG, UNK
     Route: 048
     Dates: start: 200105, end: 201307
  2. AMLODIPINE [Concomitant]
  3. CITALOPRAM [Concomitant]
  4. RAMIPRIL [Concomitant]

REACTIONS (1)
  - Back pain [Recovered/Resolved with Sequelae]
